FAERS Safety Report 4067997 (Version 2)
Quarter: 2018Q2

REPORT INFORMATION
  Report Type: Spontaneous
  Country: IT (occurrence: IT)
  Receive Date: 20040121
  Receipt Date: 20180423
  Transmission Date: 20180711
  Serious: Yes (Other)
  Sender: FDA-Public Use
  Company Number: PHBS2004IT00641

PATIENT
  Age: 67 Year
  Sex: Female

DRUGS (3)
  1. HYDROXYUREA. [Concomitant]
     Active Substance: HYDROXYUREA
     Indication: CHRONIC MYELOID LEUKAEMIA
     Route: 065
  2. IMATINIB [Suspect]
     Active Substance: IMATINIB
     Dosage: 800 MG, QD
     Route: 065
  3. IMATINIB [Suspect]
     Active Substance: IMATINIB
     Indication: BLAST CRISIS IN MYELOGENOUS LEUKAEMIA
     Dosage: 600 MG, QD
     Route: 065
     Dates: start: 200011

REACTIONS (3)
  - Blister [Recovering/Resolving]
  - Pain [Recovering/Resolving]
  - Porphyria non-acute [Recovering/Resolving]
